FAERS Safety Report 4866498-X (Version None)
Quarter: 2005Q4

REPORT INFORMATION
  Report Type: 
  Country: None (occurrence: None)
  Receive Date: 20051227
  Receipt Date: 20051107
  Transmission Date: 20060501
  Serious: Yes (Hospitalization, Other)
  Sender: FDA-Public Use
  Company Number: JP-MERCK-0511USA01430

PATIENT
  Age: 48 Year
  Sex: Male
  Weight: 60 kg

DRUGS (9)
  1. THEOLONG [Concomitant]
     Route: 048
  2. SINGULAIR [Suspect]
     Indication: ASTHMA
     Route: 048
     Dates: start: 20040315, end: 20040615
  3. MUCODYNE [Concomitant]
     Indication: PRODUCTIVE COUGH
     Route: 048
     Dates: start: 20031028
  4. MUCOSOLVAN [Concomitant]
     Indication: PRODUCTIVE COUGH
     Route: 048
     Dates: start: 20030415
  5. SEREVENT [Concomitant]
     Indication: ASTHMA
     Route: 055
     Dates: start: 20031028
  6. FLUTIDE [Concomitant]
     Indication: ASTHMA
     Route: 055
     Dates: start: 20031028
  7. THEO-DUR [Concomitant]
     Indication: ASTHMA
     Route: 048
     Dates: start: 20011022
  8. FAMOTIDINE [Concomitant]
     Indication: GASTRITIS
     Route: 048
     Dates: start: 20040517
  9. PRANLUKAST [Suspect]
     Route: 065
     Dates: start: 20030901, end: 20040301

REACTIONS (5)
  - ALLERGIC GRANULOMATOUS ANGIITIS [None]
  - ARTHRALGIA [None]
  - HYPOAESTHESIA [None]
  - PNEUMONIA [None]
  - RASH [None]
